FAERS Safety Report 8117080-2 (Version None)
Quarter: 2012Q1

REPORT INFORMATION
  Report Type: 
  Country: None (occurrence: None)
  Receive Date: 20120206
  Receipt Date: 20100617
  Transmission Date: 20120608
  Serious: Yes (Hospitalization, Other)
  Sender: FDA-Public Use
  Company Number: FR-PFIZER INC-2010078401

PATIENT
  Age: 46 Year
  Sex: Female

DRUGS (20)
  1. ATARAX [Suspect]
     Indication: PREMEDICATION
     Dosage: 75 MG, QD
     Route: 048
     Dates: start: 20100519, end: 20100520
  2. NORMACOL [Suspect]
     Indication: ENEMA ADMINISTRATION
     Dosage: UNK
     Route: 054
     Dates: start: 20100519, end: 20100519
  3. NORMACOL [Suspect]
     Indication: PREMEDICATION
  4. BETADINE [Suspect]
     Indication: PREOPERATIVE CARE
     Dosage: UNK
     Route: 067
     Dates: start: 20100520, end: 20100520
  5. ENTONOX [Suspect]
     Indication: ANAESTHESIA
     Dosage: UNKNOWN DOSE
     Route: 055
     Dates: start: 20100520, end: 20100520
  6. ACETYLSALICYLIC ACID/PARACETAMOL [Concomitant]
     Dosage: UNK
     Dates: start: 20100520
  7. LACTATED RINGER'S [Concomitant]
     Dosage: UNK
     Dates: start: 20100520
  8. DROPERIDOL [Suspect]
     Dosage: UNK
     Route: 042
     Dates: start: 20100520, end: 20100520
  9. ELECTROLYTE SOLUTIONS [Concomitant]
     Dosage: UNK
     Dates: start: 20100520
  10. LEVOTHYROXINE SODIUM [Concomitant]
  11. NEFOPAM HYDROCHLORIDE [Concomitant]
     Dosage: UNK
     Dates: start: 20100520
  12. BISOPROLOL FUMARATE AND HYDROCHLOROTHIAZIDE [Concomitant]
  13. DEXTROSE [Concomitant]
     Dosage: UNK
     Dates: start: 20100520
  14. POVIDONE-IODINE [Suspect]
     Indication: PREMEDICATION
  15. AUGMENTIN '125' [Suspect]
     Indication: ANAESTHETIC PREMEDICATION
     Dosage: 2 G, 2G/200MG
     Route: 042
     Dates: start: 20100520, end: 20100520
  16. PROPOFOL [Suspect]
     Indication: ANAESTHESIA
     Dosage: UNKNOWN DOSE
     Route: 042
     Dates: start: 20100520, end: 20100520
  17. ATRACURIUM [Suspect]
     Indication: ANAESTHESIA
     Dosage: UNK
     Route: 042
     Dates: start: 20100520, end: 20100520
  18. SEVOFLURANE [Suspect]
     Indication: ANAESTHESIA
     Dosage: UNKNOWN
     Route: 055
     Dates: start: 20100520, end: 20100520
  19. POVIDONE IODINE [Suspect]
     Indication: PREOPERATIVE CARE
     Dosage: UNKNOWN DOSE
     Route: 061
     Dates: start: 20100519, end: 20100520
  20. SUFENTA PRESERVATIVE FREE [Suspect]
     Indication: ANAESTHESIA
     Dosage: UNK
     Route: 042
     Dates: start: 20100520, end: 20100520

REACTIONS (6)
  - LYMPHOPENIA [None]
  - HAEMATURIA [None]
  - HAEMOLYSIS [None]
  - OLIGURIA [None]
  - RENAL FAILURE ACUTE [None]
  - THROMBOCYTOPENIA [None]
